FAERS Safety Report 18429811 (Version 3)
Quarter: 2021Q1

REPORT INFORMATION
  Report Type: Report from Study
  Country: US (occurrence: US)
  Receive Date: 20201026
  Receipt Date: 20210309
  Transmission Date: 20210419
  Serious: Yes (Hospitalization)
  Sender: FDA-Public Use
  Company Number: US-NATCO PHARMA-2020NAT00030

PATIENT
  Age: 42 Year
  Sex: Male

DRUGS (9)
  1. ALLOPURINOL. [Concomitant]
     Active Substance: ALLOPURINOL
  2. ALTACE [Concomitant]
     Active Substance: RAMIPRIL
  3. NOXAFIL [Concomitant]
     Active Substance: POSACONAZOLE
  4. LEVAQUIN [Concomitant]
     Active Substance: LEVOFLOXACIN
  5. PERIDEX [Concomitant]
     Active Substance: CHLORHEXIDINE GLUCONATE
  6. VALTREX [Concomitant]
     Active Substance: VALACYCLOVIR HYDROCHLORIDE
  7. AZACITIDINE. [Suspect]
     Active Substance: AZACITIDINE
     Indication: ACUTE MYELOID LEUKAEMIA
     Dosage: 75 MG/M2 (DAYS 1?7 OF EACH CYLE)
     Route: 042
     Dates: start: 20200711, end: 20201108
  8. VENETOCLAX. [Suspect]
     Active Substance: VENETOCLAX
     Indication: ACUTE MYELOID LEUKAEMIA
     Dosage: 400 MG (DAYS 1?10 OF CYCLE)
     Route: 048
     Dates: start: 20200711, end: 20201102
  9. ASP2215 [Suspect]
     Active Substance: GILTERITINIB
     Indication: ACUTE MYELOID LEUKAEMIA
     Dosage: 120 MG, 1X/DAY
     Route: 048
     Dates: start: 20200711

REACTIONS (7)
  - Lower respiratory tract infection fungal [Recovered/Resolved]
  - Staphylococcal infection [Recovered/Resolved]
  - Febrile neutropenia [Recovered/Resolved]
  - Anorectal infection [Not Recovered/Not Resolved]
  - Papilloedema [Recovered/Resolved with Sequelae]
  - Pneumonia haemophilus [Recovered/Resolved]
  - Eye infection staphylococcal [Recovered/Resolved]

NARRATIVE: CASE EVENT DATE: 2020
